FAERS Safety Report 5089419-6 (Version None)
Quarter: 2006Q3

REPORT INFORMATION
  Report Type: 
  Country: None (occurrence: None)
  Receive Date: 20060727
  Receipt Date: 20060510
  Transmission Date: 20061208
  Serious: Yes (Other)
  Sender: FDA-Public Use
  Company Number: 2006064117

PATIENT
  Age: 56 Year
  Sex: Female
  Weight: 44.4525 kg

DRUGS (3)
  1. LYRICA [Suspect]
     Indication: PAIN
     Dates: start: 20060301
  2. DURAGESIC-100 [Suspect]
     Indication: PAIN
     Dosage: 1 IN 3 D, TRANSDERMAL
     Route: 062
  3. VALIUM [Concomitant]

REACTIONS (4)
  - CONSTIPATION [None]
  - EYELID PTOSIS [None]
  - HYPERSOMNIA [None]
  - NAUSEA [None]
